FAERS Safety Report 6278475-5 (Version None)
Quarter: 2009Q3

REPORT INFORMATION
  Report Type: 
  Country: None (occurrence: None)
  Receive Date: 20090721
  Receipt Date: 20090708
  Transmission Date: 20100115
  Serious: Yes (Other)
  Sender: FDA-Public Use
  Company Number: 1000007502

PATIENT
  Age: 47 Year
  Sex: Female

DRUGS (1)
  1. CITALOPRAM ORAL SOLUTION (CITALOPRAM HYDROBROMIDE) (SOLUTION) [Suspect]
     Indication: DEPRESSION
     Dosage: (20 MG), ORAL
     Route: 048
     Dates: start: 20090404

REACTIONS (2)
  - TYPE I HYPERSENSITIVITY [None]
  - URTICARIA [None]
